FAERS Safety Report 7279068-3 (Version None)
Quarter: 2011Q1

REPORT INFORMATION
  Report Type: 
  Country: None (occurrence: None)
  Receive Date: 20110207
  Receipt Date: 20110201
  Transmission Date: 20110831
  Serious: Yes (Death, Hospitalization, Other)
  Sender: FDA-Public Use
  Company Number: PHHY2011BR08167

PATIENT
  Sex: Female

DRUGS (2)
  1. DIOVAN AMLO FIX [Suspect]
     Indication: HYPERTENSION
     Dosage: 320/5 MG, ONE TABLET, DAILY
     Route: 048
     Dates: start: 20101001
  2. SALINE [Concomitant]

REACTIONS (8)
  - LOSS OF CONSCIOUSNESS [None]
  - ARRHYTHMIA [None]
  - CARDIAC ARREST [None]
  - HYPOTENSION [None]
  - RENAL DISORDER [None]
  - BLOOD PRESSURE INADEQUATELY CONTROLLED [None]
  - RENAL FAILURE [None]
  - ANAEMIA [None]
